FAERS Safety Report 16786339 (Version 1)
Quarter: 2019Q3

REPORT INFORMATION
  Report Type: Report from Study
  Country: US (occurrence: US)
  Receive Date: 20190909
  Receipt Date: 20190909
  Transmission Date: 20191005
  Serious: Yes (Hospitalization, Other)
  Sender: FDA-Public Use
  Company Number: US-MALLINCKRODT-T201902123

PATIENT
  Age: 67 Year
  Sex: Female

DRUGS (17)
  1. REPOSITORY CORTICOTROPIN INJECTION [Suspect]
     Active Substance: CORTICOTROPIN
     Dosage: 60 UNITS / 0.75 ML, 2 TIMES PER WEEK  MONDAY/THURSDAY
     Route: 030
     Dates: start: 20190419, end: 201904
  2. REPOSITORY CORTICOTROPIN INJECTION [Suspect]
     Active Substance: CORTICOTROPIN
     Indication: UVEITIS
     Dosage: 80 UNITS / 1 ML, 2 TIMES PER WEEK MONDAY/THURSDAY
     Route: 030
     Dates: start: 20190207, end: 201902
  3. REPOSITORY CORTICOTROPIN INJECTION [Suspect]
     Active Substance: CORTICOTROPIN
     Dosage: 60 UNITS / 0.75 ML, 3 TIMES PER WEEK  MONDAY/WEDNESDAY/FRIDAY
     Route: 030
     Dates: start: 2019, end: 2019
  4. BREO ELLIPTA [Concomitant]
     Active Substance: FLUTICASONE FUROATE\VILANTEROL TRIFENATATE
     Indication: PRODUCT USED FOR UNKNOWN INDICATION
     Dosage: UNK, EVERY MORNING
     Route: 065
  5. REPOSITORY CORTICOTROPIN INJECTION [Suspect]
     Active Substance: CORTICOTROPIN
     Dosage: 40 UNITS, 2 TIMES PER WEEK ,MONDAY/THURSDAY
     Route: 030
     Dates: start: 2019, end: 20190328
  6. TRAMADOL. [Suspect]
     Active Substance: TRAMADOL
     Indication: PAIN
     Dosage: UNK
     Route: 065
  7. OXYCODONE [Suspect]
     Active Substance: OXYCODONE
     Indication: PAIN
     Dosage: UNK
     Route: 065
  8. PREDNISONE. [Suspect]
     Active Substance: PREDNISONE
     Indication: RHEUMATOID ARTHRITIS
     Dosage: UNK
     Route: 065
  9. REPOSITORY CORTICOTROPIN INJECTION [Suspect]
     Active Substance: CORTICOTROPIN
     Dosage: 60 UNITS / 0.75 ML, 3 TIMES PER WEEK  MONDAY/WEDNESDAY/THURSDAY
     Route: 030
     Dates: start: 20190506, end: 2019
  10. REPOSITORY CORTICOTROPIN INJECTION [Suspect]
     Active Substance: CORTICOTROPIN
     Dosage: 60 UNITS / 0.75 ML, 2 INJECTIONS PER WEEK FOR TWO WEEKS
     Route: 030
     Dates: start: 2019, end: 2019
  11. REPOSITORY CORTICOTROPIN INJECTION [Suspect]
     Active Substance: CORTICOTROPIN
     Indication: SCLERITIS
     Dosage: 80 UNITS / 1 ML, 2 TIMES PER WEEK ,MONDAY/THURSDAY
     Route: 030
     Dates: start: 201902, end: 2019
  12. REPOSITORY CORTICOTROPIN INJECTION [Suspect]
     Active Substance: CORTICOTROPIN
     Dosage: 40 UNITS, UNK
     Route: 030
     Dates: start: 20190311, end: 2019
  13. TYLENOL [Suspect]
     Active Substance: ACETAMINOPHEN
     Indication: PAIN
     Dosage: UNK
     Route: 065
  14. COSENTYX [Concomitant]
     Active Substance: SECUKINUMAB
     Indication: RHEUMATOID ARTHRITIS
     Dosage: UNK
     Route: 065
  15. REPOSITORY CORTICOTROPIN INJECTION [Suspect]
     Active Substance: CORTICOTROPIN
     Dosage: 40 UNITS, 2 TIMES PER WEEK
     Route: 058
     Dates: start: 20190415, end: 201904
  16. REPOSITORY CORTICOTROPIN INJECTION [Suspect]
     Active Substance: CORTICOTROPIN
     Dosage: 60 UNITS / 0.75 ML, 2 TIMES PER WEEK  MONDAY/THURSDAY
     Route: 030
     Dates: start: 2019, end: 20190325
  17. REPOSITORY CORTICOTROPIN INJECTION [Suspect]
     Active Substance: CORTICOTROPIN
     Dosage: 60 UNITS / 0.75 ML, 1 INJECTION FOR TWO WEEKS
     Route: 030
     Dates: start: 2019, end: 20190826

REACTIONS (46)
  - Dystonia [Not Recovered/Not Resolved]
  - Ear discomfort [Unknown]
  - Hot flush [Not Recovered/Not Resolved]
  - Tremor [Not Recovered/Not Resolved]
  - Sneezing [Unknown]
  - Drug ineffective [Not Recovered/Not Resolved]
  - Uveitis [Not Recovered/Not Resolved]
  - Ear infection [Recovered/Resolved]
  - Cataract [Recovering/Resolving]
  - Paraesthesia [Unknown]
  - Fatigue [Not Recovered/Not Resolved]
  - Pain [Not Recovered/Not Resolved]
  - Hallucination, visual [Not Recovered/Not Resolved]
  - Memory impairment [Not Recovered/Not Resolved]
  - Blood zinc decreased [Unknown]
  - Vitamin D decreased [Unknown]
  - Chest pain [Not Recovered/Not Resolved]
  - Hypertension [Not Recovered/Not Resolved]
  - Pyrexia [Not Recovered/Not Resolved]
  - Insomnia [Not Recovered/Not Resolved]
  - Jarisch-Herxheimer reaction [Unknown]
  - Condition aggravated [Not Recovered/Not Resolved]
  - Hypersomnia [Unknown]
  - Eye pain [Recovered/Resolved]
  - Intervertebral disc degeneration [Not Recovered/Not Resolved]
  - Urine odour abnormal [Unknown]
  - Feeling abnormal [Not Recovered/Not Resolved]
  - Diarrhoea [Recovered/Resolved]
  - Gait disturbance [Recovering/Resolving]
  - Rheumatoid arthritis [Recovering/Resolving]
  - Back pain [Unknown]
  - Malaise [Not Recovered/Not Resolved]
  - Incorrect route of product administration [Not Recovered/Not Resolved]
  - Infection [Not Recovered/Not Resolved]
  - Electrolyte imbalance [Unknown]
  - Blood copper decreased [Unknown]
  - Fluid retention [Recovered/Resolved]
  - Neck pain [Unknown]
  - Stress [Recovering/Resolving]
  - Thinking abnormal [Not Recovered/Not Resolved]
  - Urinary tract infection [Unknown]
  - Abdominal pain upper [Not Recovered/Not Resolved]
  - Visual impairment [Recovering/Resolving]
  - Red blood cell sedimentation rate increased [Recovering/Resolving]
  - Joint range of motion decreased [Unknown]
  - Swelling face [Recovering/Resolving]

NARRATIVE: CASE EVENT DATE: 2019
